FAERS Safety Report 15631203 (Version 3)
Quarter: 2019Q1

REPORT INFORMATION
  Report Type: Spontaneous
  Country: DE (occurrence: DE)
  Receive Date: 20181119
  Receipt Date: 20190125
  Transmission Date: 20190417
  Serious: Yes (Hospitalization, Other)
  Sender: FDA-Public Use
  Company Number: DE-BRISTOL-MYERS SQUIBB COMPANY-BMS-2018-105124

PATIENT
  Age: 75 Year
  Sex: Male

DRUGS (1)
  1. OPDIVO [Suspect]
     Active Substance: NIVOLUMAB
     Indication: RENAL CELL CARCINOMA
     Dosage: UNK
     Route: 065
     Dates: start: 20160701

REACTIONS (13)
  - Fatigue [Unknown]
  - Dyspnoea [Unknown]
  - Palmar-plantar erythrodysaesthesia syndrome [Unknown]
  - Hypothyroidism [Unknown]
  - Pruritus [Unknown]
  - Cardiac failure [Unknown]
  - Constipation [Unknown]
  - Visual field defect [Unknown]
  - Rash maculo-papular [Unknown]
  - Drug intolerance [Unknown]
  - Dizziness [Unknown]
  - Blood glucose abnormal [Unknown]
  - Hypophysitis [Unknown]
